FAERS Safety Report 6596109-7 (Version None)
Quarter: 2010Q1

REPORT INFORMATION
  Report Type: 
  Country: None (occurrence: None)
  Receive Date: 20100223
  Receipt Date: 20100210
  Transmission Date: 20100710
  Serious: Yes (Life-Threatening, Hospitalization, Disabling, Other)
  Sender: FDA-Public Use
  Company Number: DK-PFIZER INC-2010017443

PATIENT
  Sex: Male

DRUGS (1)
  1. SOLU-MEDROL [Suspect]
     Indication: COLITIS
     Dosage: UNK
     Route: 030
     Dates: start: 20040119, end: 20040128

REACTIONS (2)
  - PANCREATIC INSUFFICIENCY [None]
  - PANCREATITIS CHRONIC [None]
